FAERS Safety Report 7900227-8 (Version None)
Quarter: 2011Q4

REPORT INFORMATION
  Report Type: 
  Country: None (occurrence: None)
  Receive Date: 20111107
  Receipt Date: 20111022
  Transmission Date: 20120403
  Serious: Yes (Hospitalization, Other)
  Sender: FDA-Public Use
  Company Number: 2011AP002471

PATIENT
  Age: 85 Year
  Sex: Female

DRUGS (3)
  1. ALLOPURINOL [Suspect]
     Indication: GOUT
  2. FEBUXOSTAT [Suspect]
     Indication: GOUT
     Dosage: 40 MG;QD
  3. INFLUENZA VACCINE [Concomitant]

REACTIONS (2)
  - DERMATITIS EXFOLIATIVE [None]
  - LEUKOCYTOCLASTIC VASCULITIS [None]
